FAERS Safety Report 24197938 (Version 1)
Quarter: 2024Q3

REPORT INFORMATION
  Report Type: Spontaneous
  Country: CN (occurrence: CN)
  Receive Date: 20240812
  Receipt Date: 20240812
  Transmission Date: 20241017
  Serious: Yes (Hospitalization)
  Sender: ABBVIE
  Company Number: CN-ABBVIE-5871373

PATIENT
  Sex: Male

DRUGS (3)
  1. VENCLEXTA [Suspect]
     Active Substance: VENETOCLAX
     Indication: Chronic myelomonocytic leukaemia
     Dosage: 100 MILLIGRAM?D1
     Route: 048
     Dates: start: 20240704, end: 20240704
  2. VENCLEXTA [Suspect]
     Active Substance: VENETOCLAX
     Indication: Chronic myelomonocytic leukaemia
     Dosage: 200 MILLIGRAM?D2-D28
     Route: 048
     Dates: start: 20240705
  3. DECITABINE [Suspect]
     Active Substance: DECITABINE
     Indication: Chronic myelomonocytic leukaemia
     Dosage: 10 MILLIGRAM?D1-5, D8-12
     Route: 041
     Dates: start: 20240704, end: 20240710

REACTIONS (5)
  - Dyspnoea [Recovering/Resolving]
  - Off label use [Unknown]
  - Gastrointestinal disorder [Unknown]
  - Chest discomfort [Unknown]
  - Myelosuppression [Unknown]

NARRATIVE: CASE EVENT DATE: 20240101
